FAERS Safety Report 9230498 (Version 11)
Quarter: 2015Q3

REPORT INFORMATION
  Report Type: Report from Study
  Country: DE (occurrence: DE)
  Receive Date: 20130415
  Receipt Date: 20150721
  Transmission Date: 20151125
  Serious: Yes (Death, Other)
  Sender: FDA-Public Use
  Company Number: PHHY2013DE035355

PATIENT
  Age: 65 Year
  Sex: Female
  Weight: 75.2 kg

DRUGS (4)
  1. AFINITOR [Suspect]
     Active Substance: EVEROLIMUS
     Dosage: 10 MG, QD
     Route: 048
     Dates: start: 20130314, end: 20130410
  2. AFINITOR [Suspect]
     Active Substance: EVEROLIMUS
     Indication: BREAST CANCER METASTATIC
     Dosage: 10 MG, QD
     Route: 048
     Dates: start: 20130124, end: 20130304
  3. EXEMESTANE. [Concomitant]
     Active Substance: EXEMESTANE
     Indication: BREAST CANCER METASTATIC
     Dosage: 25 MG, QD
     Route: 048
     Dates: start: 20130124, end: 20130626
  4. AFINITOR [Suspect]
     Active Substance: EVEROLIMUS
     Dosage: 5 MG, QD
     Route: 048
     Dates: start: 20130411, end: 20130615

REACTIONS (12)
  - Choking [Fatal]
  - Pruritus [Unknown]
  - Abscess [Unknown]
  - Stomatitis [Recovered/Resolved]
  - Vomiting [Fatal]
  - Cough [Unknown]
  - Headache [Unknown]
  - C-reactive protein increased [Recovered/Resolved]
  - Skin fissures [Recovered/Resolved]
  - White blood cell count increased [Recovered/Resolved]
  - Pyrexia [Not Recovered/Not Resolved]
  - Muscle spasms [Unknown]

NARRATIVE: CASE EVENT DATE: 201302
